FAERS Safety Report 6515588-4 (Version None)
Quarter: 2009Q4

REPORT INFORMATION
  Report Type: 
  Country: None (occurrence: None)
  Receive Date: 20091223
  Receipt Date: 20091216
  Transmission Date: 20100525
  Serious: Yes (Life-Threatening)
  Sender: FDA-Public Use
  Company Number: DE-CELGENEUS-062-C5013-09120777

PATIENT
  Age: 70 Year
  Sex: Female
  Weight: 65 kg

DRUGS (8)
  1. CC-5013 [Suspect]
     Indication: MULTIPLE MYELOMA
     Route: 048
     Dates: start: 20090406
  2. DEXAMETHASONE TAB [Suspect]
     Indication: MULTIPLE MYELOMA
     Route: 065
     Dates: start: 20090602
  3. DEXAMETHASONE TAB [Suspect]
     Route: 065
     Dates: start: 20090406
  4. CLEXANE [Concomitant]
     Indication: THROMBOSIS PROPHYLAXIS
     Route: 058
     Dates: start: 20090406, end: 20090807
  5. NOCTAMID [Concomitant]
     Indication: INSOMNIA
     Route: 048
  6. CALCIUM [Concomitant]
     Indication: HYPOCALCAEMIA
     Route: 048
     Dates: start: 20090608
  7. PANTOPRAZOLE [Concomitant]
     Indication: PROPHYLAXIS
     Route: 048
  8. LEVOTHYROXINE SODIUM [Concomitant]
     Indication: HYPOTHYROIDISM
     Route: 048
     Dates: start: 20050101

REACTIONS (1)
  - ANAEMIA [None]
